FAERS Safety Report 25998548 (Version 1)
Quarter: 2025Q4

REPORT INFORMATION
  Report Type: Report from Study
  Country: IN (occurrence: IN)
  Receive Date: 20251105
  Receipt Date: 20251105
  Transmission Date: 20260117
  Serious: Yes (Other)
  Sender: ROCHE
  Company Number: IN-ROCHE-10000420033

PATIENT
  Age: 52 Year
  Sex: Female
  Weight: 55 kg

DRUGS (2)
  1. CELLCEPT [Suspect]
     Active Substance: MYCOPHENOLATE MOFETIL
     Indication: Product used for unknown indication
     Dosage: 1000 MG B.I.D
     Route: 048
  2. POTRATE [Concomitant]

REACTIONS (7)
  - Sjogren^s syndrome [Unknown]
  - Nephrolithiasis [Unknown]
  - Hypertransaminasaemia [Unknown]
  - Neuropathy peripheral [Unknown]
  - Cholelithiasis [Unknown]
  - Burning sensation [Unknown]
  - Leukopenia [Unknown]
